FAERS Safety Report 8257588-2 (Version None)
Quarter: 2012Q2

REPORT INFORMATION
  Report Type: 
  Country: None (occurrence: None)
  Receive Date: 20120403
  Receipt Date: 20120326
  Transmission Date: 20120825
  Serious: Yes (Hospitalization)
  Sender: FDA-Public Use
  Company Number: US-ELI_LILLY_AND_COMPANY-US201203007571

PATIENT
  Sex: Female

DRUGS (17)
  1. ASPIRIN [Concomitant]
     Indication: CARDIAC DISORDER
     Dosage: 162 MG, QD
     Route: 048
  2. PRAVASTATIN [Concomitant]
     Indication: BLOOD CHOLESTEROL INCREASED
     Dosage: 80 MG, QD
     Route: 048
  3. MELOXICAM [Concomitant]
     Indication: ARTHRITIS
     Dosage: 15 MG, QD
     Route: 048
  4. RANEXA [Concomitant]
     Indication: ANGINA PECTORIS
     Dosage: 1000 MG, BID
     Route: 048
  5. ZETIA [Concomitant]
     Indication: BLOOD CHOLESTEROL INCREASED
     Dosage: 10 MG, QD
     Route: 048
  6. VITAMIN TAB [Concomitant]
     Dosage: UNK, QD
     Route: 048
  7. LISINOPRIL AND HYDROCHLOROTHIAZIDE [Concomitant]
     Indication: CARDIAC DISORDER
     Dosage: 1 DF, QD
     Route: 048
  8. LEVOTHYROXINE SODIUM [Concomitant]
     Indication: THYROID DISORDER
     Dosage: 112 UG, QD
     Route: 048
  9. OXYGEN [Concomitant]
     Indication: SLEEP APNOEA SYNDROME
     Dosage: UNK
     Route: 045
  10. LOMOTIL [Concomitant]
     Indication: DIARRHOEA
     Dosage: 2.5 MG, PRN
     Route: 048
  11. EYE DROPS [Concomitant]
     Indication: GLAUCOMA
     Dosage: UNK, QD
  12. BYETTA [Suspect]
     Indication: TYPE 2 DIABETES MELLITUS
     Dosage: 5 UG, BID
     Route: 058
     Dates: start: 20080101
  13. BYETTA [Suspect]
     Dosage: 10 UG, BID
     Route: 058
  14. METFORMIN HCL [Concomitant]
     Indication: TYPE 2 DIABETES MELLITUS
     Dosage: 1000 MG, QD
     Route: 048
  15. PROTONIX [Concomitant]
     Indication: GASTROOESOPHAGEAL REFLUX DISEASE
     Dosage: 40 MG, QD
     Route: 048
  16. METOPROLOL SUCCINATE [Concomitant]
     Indication: ANGINA PECTORIS
     Dosage: 50 MG, QD
     Route: 048
  17. LORAZEPAM [Concomitant]
     Indication: SLEEP DISORDER
     Dosage: 1 MG, QD
     Route: 048

REACTIONS (7)
  - GALLBLADDER OPERATION [None]
  - BLOOD GLUCOSE INCREASED [None]
  - BREAST DISCOMFORT [None]
  - INFECTION [None]
  - BLOOD CHOLESTEROL DECREASED [None]
  - TREMOR [None]
  - PYREXIA [None]
